FAERS Safety Report 7765711-9 (Version None)
Quarter: 2011Q3

REPORT INFORMATION
  Report Type: 
  Country: None (occurrence: None)
  Receive Date: 20110921
  Receipt Date: 20110224
  Transmission Date: 20111222
  Serious: No
  Sender: FDA-Public Use
  Company Number: US-BAYER-2011-018478

PATIENT
  Age: 11 Year
  Sex: Male

DRUGS (2)
  1. ALEVE (CAPLET) [Suspect]
     Indication: BACK PAIN
  2. ALEVE (CAPLET) [Suspect]
     Indication: HEADACHE
     Route: 048

REACTIONS (2)
  - HEADACHE [None]
  - BACK PAIN [None]
